FAERS Safety Report 15415139 (Version 1)
Quarter: 2018Q3

REPORT INFORMATION
  Report Type: Report from Study
  Country: US (occurrence: US)
  Receive Date: 20180921
  Receipt Date: 20180921
  Transmission Date: 20181010
  Serious: No
  Sender: FDA-Public Use
  Company Number: PHEH2018US039490

PATIENT
  Sex: Male
  Weight: 100.7 kg

DRUGS (1)
  1. COSENTYX [Suspect]
     Active Substance: SECUKINUMAB
     Indication: PSORIATIC ARTHROPATHY
     Dosage: 150 MG, ONCE EVERY 2 WEEKS
     Route: 058
     Dates: start: 201805

REACTIONS (2)
  - Arthralgia [Unknown]
  - Drug ineffective [Unknown]
